FAERS Safety Report 8578936-X (Version None)
Quarter: 2012Q3

REPORT INFORMATION
  Report Type: 
  Country: None (occurrence: None)
  Receive Date: 20120808
  Receipt Date: 20120806
  Transmission Date: 20120928
  Serious: Yes (Other)
  Sender: FDA-Public Use
  Company Number: US-PFIZER INC-2012191978

PATIENT
  Sex: Female

DRUGS (4)
  1. CHANTIX [Suspect]
     Indication: SMOKING CESSATION THERAPY
     Dosage: 0.5 MG, DAILY
     Dates: start: 20120722, end: 20120701
  2. CHANTIX [Suspect]
     Dosage: 1 MG, 2X/DAY
     Dates: start: 20120701, end: 20120804
  3. CETIRIZINE [Concomitant]
     Indication: ALLERGIC SINUSITIS
     Dosage: 10 MG, DAILY
  4. FLONASE [Concomitant]
     Indication: ALLERGIC SINUSITIS
     Dosage: 50 UG, DAILY

REACTIONS (4)
  - BLISTER [None]
  - RASH [None]
  - DRUG INEFFECTIVE [None]
  - SKIN DISORDER [None]
